FAERS Safety Report 15689230 (Version 3)
Quarter: 2019Q3

REPORT INFORMATION
  Report Type: Spontaneous
  Country: US (occurrence: US)
  Receive Date: 20181205
  Receipt Date: 20190722
  Transmission Date: 20191004
  Serious: Yes (Hospitalization, Other)
  Sender: FDA-Public Use
  Company Number: US-GLAXOSMITHKLINE-US2018216838

PATIENT
  Age: 47 Year
  Sex: Female
  Weight: 92.97 kg

DRUGS (3)
  1. TESSALON [Concomitant]
     Active Substance: BENZONATATE
  2. MEDROL DOSE PACK [Concomitant]
     Active Substance: METHYLPREDNISOLONE
  3. NUCALA [Suspect]
     Active Substance: MEPOLIZUMAB
     Indication: ASTHMA
     Dosage: UNK
     Route: 042
     Dates: start: 20181008, end: 201811

REACTIONS (17)
  - Muscle rupture [Not Recovered/Not Resolved]
  - Productive cough [Recovered/Resolved]
  - Chest discomfort [Not Recovered/Not Resolved]
  - Throat irritation [Recovered/Resolved]
  - Asthma [Unknown]
  - Dyspnoea [Recovered/Resolved]
  - Choking [Recovered/Resolved]
  - Cough [Recovered/Resolved]
  - Insomnia [Recovered/Resolved]
  - Aphonia [Recovered/Resolved]
  - Condition aggravated [Recovered/Resolved]
  - Adverse event [Unknown]
  - Wheezing [Unknown]
  - Drug ineffective [Unknown]
  - Fear [Recovered/Resolved]
  - Secretion discharge [Recovered/Resolved]
  - Agitation [Recovered/Resolved]

NARRATIVE: CASE EVENT DATE: 201811
